FAERS Safety Report 6854997-0 (Version None)
Quarter: 2010Q3

REPORT INFORMATION
  Report Type: 
  Country: None (occurrence: None)
  Receive Date: 20100717
  Receipt Date: 20080908
  Transmission Date: 20110219
  Serious: No
  Sender: FDA-Public Use
  Company Number: US-PFIZER INC-2007096924

PATIENT
  Sex: Female
  Weight: 90.72 kg

DRUGS (11)
  1. CHANTIX [Suspect]
     Indication: SMOKING CESSATION THERAPY
     Route: 048
     Dates: start: 20071107
  2. ZOCOR [Concomitant]
  3. TRAZODONE HYDROCHLORIDE [Concomitant]
  4. REMERON [Concomitant]
  5. PEPCID [Concomitant]
  6. PRILOSEC [Concomitant]
  7. POTASSIUM CHLORIDE [Concomitant]
  8. ZYBAN [Concomitant]
  9. PROZAC [Concomitant]
  10. ABILIFY [Concomitant]
  11. NEURONTIN [Concomitant]

REACTIONS (13)
  - ACTIVITIES OF DAILY LIVING IMPAIRED [None]
  - ANGER [None]
  - ARTHRALGIA [None]
  - DECREASED INTEREST [None]
  - DIARRHOEA [None]
  - DRUG DOSE OMISSION [None]
  - DRUG INEFFECTIVE [None]
  - FATIGUE [None]
  - HEADACHE [None]
  - INITIAL INSOMNIA [None]
  - IRRITABILITY [None]
  - MIGRAINE [None]
  - SOMNOLENCE [None]
